FAERS Safety Report 9726597 (Version 2)
Quarter: 2013Q4

REPORT INFORMATION
  Report Type: Report from Study
  Country: JP (occurrence: JP)
  Receive Date: 20131203
  Receipt Date: 20131230
  Transmission Date: 20140711
  Serious: Yes (Death, Hospitalization)
  Sender: FDA-Public Use
  Company Number: JP-GLAXOSMITHKLINE-B0948937A

PATIENT
  Age: 45 Year
  Sex: Female
  Weight: 49 kg

DRUGS (4)
  1. VOTRIENT 200MG [Suspect]
     Indication: SYNOVIAL SARCOMA
     Dosage: 400MG PER DAY
     Route: 048
     Dates: start: 20130212, end: 20130224
  2. VOTRIENT 200MG [Suspect]
     Indication: SYNOVIAL SARCOMA
     Dosage: 600MG PER DAY
     Route: 048
     Dates: start: 20130225, end: 20130512
  3. VOTRIENT 200MG [Suspect]
     Indication: SYNOVIAL SARCOMA
     Dosage: 400MG PER DAY
     Route: 048
     Dates: start: 20130513, end: 20130723
  4. VOTRIENT 200MG [Suspect]
     Indication: SYNOVIAL SARCOMA
     Dosage: 400MG PER DAY
     Route: 048
     Dates: start: 20130821, end: 20131026

REACTIONS (4)
  - Haemoptysis [Fatal]
  - Pyrexia [Recovered/Resolved]
  - Hair colour changes [Fatal]
  - Skin disorder [Fatal]
